FAERS Safety Report 10452388 (Version 1)
Quarter: 2014Q3

REPORT INFORMATION
  Report Type: Spontaneous
  Country: US (occurrence: None)
  Receive Date: 20140912
  Receipt Date: 20140912
  Transmission Date: 20150326
  Serious: No
  Sender: FDA-Public Use
  Company Number: None

PATIENT

DRUGS (1)
  1. ALDARA [Suspect]
     Active Substance: IMIQUIMOD
     Dosage: CREAM, TOPICAL, 5%
     Route: 061

REACTIONS (1)
  - Product quality issue [None]
